FAERS Safety Report 9802725 (Version 1)
Quarter: 2014Q1

REPORT INFORMATION
  Report Type: Spontaneous
  Country: PH (occurrence: PH)
  Receive Date: 20140108
  Receipt Date: 20140108
  Transmission Date: 20141002
  Serious: Yes (Death)
  Sender: FDA-Public Use
  Company Number: PH-009507513-1401PHL001599

PATIENT
  Age: 84 Year
  Sex: Female

DRUGS (1)
  1. JANUVIA [Suspect]
     Dosage: 1 DF (1 TABLET), QD
     Route: 048
     Dates: start: 20120731

REACTIONS (2)
  - Pneumonia [Fatal]
  - Adverse event [Fatal]
